FAERS Safety Report 16037272 (Version 1)
Quarter: 2019Q1

REPORT INFORMATION
  Report Type: Report from Study
  Country: CR (occurrence: CR)
  Receive Date: 20190305
  Receipt Date: 20190305
  Transmission Date: 20190418
  Serious: Yes (Other)
  Sender: FDA-Public Use
  Company Number: CR-SA-2019SA060714

PATIENT
  Age: 94 Year
  Sex: Female

DRUGS (1)
  1. IRBESARTAN. [Suspect]
     Active Substance: IRBESARTAN
     Indication: HYPERTENSION
     Dosage: 1 DF, QD (1 ORAL TABLET OF 300 MG OF IRBESARTAN EVERY 24 HOURS)
     Route: 048
     Dates: start: 1999

REACTIONS (2)
  - Hip fracture [Unknown]
  - Fall [Unknown]

NARRATIVE: CASE EVENT DATE: 2017
